FAERS Safety Report 5353247-4 (Version None)
Quarter: 2007Q2

REPORT INFORMATION
  Report Type: 
  Country: None (occurrence: None)
  Receive Date: 20070608
  Receipt Date: 20070524
  Transmission Date: 20071010
  Serious: Yes (Other)
  Sender: FDA-Public Use
  Company Number: 2007-159166-NL

PATIENT
  Age: 27 Year
  Sex: Female
  Weight: 68 kg

DRUGS (1)
  1. NUVARING [Suspect]
     Indication: CONTRACEPTION
     Dosage: VAGINAL, 3 WEEKS IN , 1 WEEK OUT
     Route: 067
     Dates: start: 20070301, end: 20070524

REACTIONS (2)
  - ENDOMETRIAL DISORDER [None]
  - SMEAR CERVIX ABNORMAL [None]
